FAERS Safety Report 9387860 (Version 1)
Quarter: 2013Q3

REPORT INFORMATION
  Report Type: Spontaneous
  Country: US (occurrence: None)
  Receive Date: 20130701
  Receipt Date: 20130701
  Transmission Date: 20140515
  Serious: Yes (Other)
  Sender: FDA-Public Use
  Company Number: AUR-APL-2013-05328

PATIENT
  Age: 51 Year
  Sex: Female
  Weight: 77.1 kg

DRUGS (8)
  1. METOPROLOL [Suspect]
     Indication: RESPIRATORY DISORDER
  2. ACCURETIC [Suspect]
     Indication: HYPERTENSION
     Dosage: 50MG (25MG, 2 IN 1 D)
     Dates: start: 2006, end: 2013
  3. CADUET [Suspect]
     Indication: HEART RATE ABNORMAL
     Dosage: 5MG, 1 D
     Dates: start: 2009, end: 2013
  4. NITROSTAT [Suspect]
     Indication: CHEST PAIN
     Dosage: AS REQUIRED, UNKNOWN
     Dates: end: 2013
  5. ENALAPRIL [Concomitant]
  6. VITAMIN D (ERGOCALCIFEROL) [Concomitant]
  7. TYLENOL (PARACETAMOL) [Concomitant]
  8. HYDROCHLOROTHIAZIDE (HYDROCHLOROTHIAZIDE) [Concomitant]

REACTIONS (5)
  - Off label use [None]
  - Treatment noncompliance [None]
  - Drug administration error [None]
  - Dyspnoea [None]
  - Heart rate increased [None]
